FAERS Safety Report 13179010 (Version 1)
Quarter: 2017Q1

REPORT INFORMATION
  Report Type: Spontaneous
  Country: DK (occurrence: DK)
  Receive Date: 20170202
  Receipt Date: 20170202
  Transmission Date: 20170428
  Serious: Yes (Other)
  Sender: FDA-Public Use
  Company Number: DK-TEVA-733242ACC

PATIENT
  Age: 72 Year
  Sex: Female

DRUGS (3)
  1. DEPO-MEDROL [Concomitant]
     Active Substance: METHYLPREDNISOLONE ACETATE
     Dates: start: 20151118, end: 20151118
  2. PREDNISOLONE. [Concomitant]
     Active Substance: PREDNISOLONE
     Dates: end: 20151224
  3. EMTHEXATE [Suspect]
     Active Substance: METHOTREXATE
     Indication: TEMPORAL ARTERITIS
     Route: 048
     Dates: start: 20150923, end: 20151223

REACTIONS (10)
  - Pyrexia [Recovered/Resolved]
  - Pollakiuria [Recovered/Resolved]
  - Sleep apnoea syndrome [Not Recovered/Not Resolved]
  - Cystitis escherichia [Recovered/Resolved]
  - Pain in jaw [Unknown]
  - Sensory disturbance [Unknown]
  - Pneumonia fungal [Recovered/Resolved]
  - Malaise [Recovered/Resolved]
  - Fatigue [Unknown]
  - Dyspnoea [Not Recovered/Not Resolved]

NARRATIVE: CASE EVENT DATE: 2015
